FAERS Safety Report 8445689-5 (Version None)
Quarter: 2012Q2

REPORT INFORMATION
  Report Type: 
  Country: None (occurrence: None)
  Receive Date: 20120618
  Receipt Date: 20120618
  Transmission Date: 20120825
  Serious: Yes (Hospitalization)
  Sender: FDA-Public Use
  Company Number: US-GLAXOSMITHKLINE-A0843269A

PATIENT
  Age: 82 Year
  Sex: Female

DRUGS (6)
  1. LANOXIN [Concomitant]
  2. INSULIN [Concomitant]
  3. ZETIA [Concomitant]
  4. LOPID [Concomitant]
  5. INDERAL [Concomitant]
  6. AVANDIA [Suspect]
     Indication: DIABETES MELLITUS
     Dosage: 4MG TWICE PER DAY
     Route: 048
     Dates: start: 20050621, end: 20061025

REACTIONS (4)
  - HEART VALVE STENOSIS [None]
  - MYOCARDIAL INFARCTION [None]
  - ARRHYTHMIA [None]
  - CARDIAC FAILURE CONGESTIVE [None]
